FAERS Safety Report 10377988 (Version 2)
Quarter: 2014Q3

REPORT INFORMATION
  Report Type: Other
  Country: DK (occurrence: DK)
  Receive Date: 20140812
  Receipt Date: 20140812
  Transmission Date: 20150326
  Serious: Yes (Other)
  Sender: FDA-Public Use
  Company Number: DK-MYLAN-2014S1004432

PATIENT

DRUGS (1)
  1. LAMOTRIGINE. [Suspect]
     Active Substance: LAMOTRIGINE
     Indication: EPILEPSY
     Dosage: 150 MG,QD

REACTIONS (2)
  - Osteoporosis [Unknown]
  - Alopecia [Unknown]
